FAERS Safety Report 10437977 (Version 2)
Quarter: 2014Q3

REPORT INFORMATION
  Report Type: Spontaneous
  Country: US (occurrence: US)
  Receive Date: 20140908
  Receipt Date: 20140908
  Transmission Date: 20150326
  Serious: No
  Sender: FDA-Public Use
  Company Number: US-BRISTOL-MYERS SQUIBB COMPANY-19797729

PATIENT
  Age: 60 Year
  Sex: Male
  Weight: 114.28 kg

DRUGS (14)
  1. LITHIUM CARBONATE. [Concomitant]
     Active Substance: LITHIUM CARBONATE
  2. ARICEPT [Concomitant]
     Active Substance: DONEPEZIL HYDROCHLORIDE
  3. BACLOFEN. [Concomitant]
     Active Substance: BACLOFEN
     Indication: TARDIVE DYSKINESIA
  4. NOVOLOG [Concomitant]
     Active Substance: INSULIN ASPART
     Dosage: 1DF=12U WITH BREAKFAST;?10U WITH LUNCH;?12U WITH SUPPER;?40U BEFORE BED.
  5. CIALIS [Concomitant]
     Active Substance: TADALAFIL
  6. SYNTHROID [Concomitant]
     Active Substance: LEVOTHYROXINE SODIUM
     Dosage: 1DF=0.175 UNITS NOS
  7. ABILIFY [Suspect]
     Active Substance: ARIPIPRAZOLE
     Indication: BIPOLAR DISORDER
  8. LEVOTHYROXINE [Concomitant]
     Active Substance: LEVOTHYROXINE
  9. LANTUS [Concomitant]
     Active Substance: INSULIN GLARGINE
     Dosage: 1 DF=35U QAM
  10. BABY ASPIRIN [Concomitant]
     Active Substance: ASPIRIN
  11. CLONAZEPAM. [Concomitant]
     Active Substance: CLONAZEPAM
     Dosage: 1 QAM;?1 QPM;?2 QHS.
  12. LISINOPRIL. [Concomitant]
     Active Substance: LISINOPRIL
  13. TRAZODONE HYDROCHLORIDE. [Concomitant]
     Active Substance: TRAZODONE HYDROCHLORIDE
     Dosage: THREE PILLS QHS
  14. BACLOFEN. [Concomitant]
     Active Substance: BACLOFEN
     Indication: PARKINSONISM

REACTIONS (6)
  - Blood glucose increased [Unknown]
  - Tardive dyskinesia [Not Recovered/Not Resolved]
  - Somnolence [Unknown]
  - Parkinsonism [Not Recovered/Not Resolved]
  - Dysphagia [Not Recovered/Not Resolved]
  - Tremor [Unknown]
